FAERS Safety Report 25570782 (Version 5)
Quarter: 2025Q3

REPORT INFORMATION
  Report Type: Spontaneous
  Country: EU (occurrence: EU)
  Receive Date: 20250717
  Receipt Date: 20250910
  Transmission Date: 20251021
  Serious: Yes (Other)
  Sender: Haleon PLC
  Company Number: EU-002147023-NVSC2021DE301308

PATIENT
  Age: 77 Year
  Sex: Male
  Weight: 77 kg

DRUGS (328)
  1. VOLTAREN [Suspect]
     Active Substance: DICLOFENAC SODIUM
     Indication: Product used for unknown indication
  2. Calcium carbonate; Calcium lactate gluconate [Concomitant]
     Indication: Product used for unknown indication
  3. Calcium carbonate; Calcium lactate gluconate [Concomitant]
     Dosage: 500 MG, BID, ROUTE: UNKNOWN
  4. EVOLOCUMAB [Concomitant]
     Active Substance: EVOLOCUMAB
     Indication: Product used for unknown indication
  5. EVOLOCUMAB [Concomitant]
     Active Substance: EVOLOCUMAB
     Dosage: UNK, EVERY 3 WEEKS (Q3W), ROUTE: UNKNOWN
  6. EVOLOCUMAB [Concomitant]
     Active Substance: EVOLOCUMAB
  7. EVOLOCUMAB [Concomitant]
     Active Substance: EVOLOCUMAB
     Dosage: UNK, EVERY THREE WEEKS
  8. PANTOTHENIC ACID [Suspect]
     Active Substance: PANTOTHENIC ACID
     Indication: Product used for unknown indication
  9. PANTOTHENIC ACID [Suspect]
     Active Substance: PANTOTHENIC ACID
  10. .ALPHA.-TOCOPHEROL ACETATE, DL- [Suspect]
     Active Substance: .ALPHA.-TOCOPHEROL ACETATE, DL-
     Indication: Product used for unknown indication
     Dosage: 2000 INTERNATIONAL UNIT, WEEKLY (1/W), ROUTE: UNKNOWN
  11. TAMSULOSIN HYDROCHLORIDE [Suspect]
     Active Substance: TAMSULOSIN HYDROCHLORIDE
     Indication: Product used for unknown indication
  12. TAMSULOSIN HYDROCHLORIDE [Suspect]
     Active Substance: TAMSULOSIN HYDROCHLORIDE
  13. MOMETASONE FUROATE [Suspect]
     Active Substance: MOMETASONE FUROATE
     Indication: Product used for unknown indication
     Dosage: 2 PUFF(S), BID (2 PUFFS (1-0-1)), ROUTE: UNKNOWN
  14. MOMETASONE FUROATE [Suspect]
     Active Substance: MOMETASONE FUROATE
     Dosage: 2 DOSAGE FORM, DAILY(1 IN 0.5 DAY), ROUTE: UNKNOWN
  15. MOMETASONE FUROATE [Suspect]
     Active Substance: MOMETASONE FUROATE
     Dosage: 2 DF, TWICE DAILY (2 DOSAGE FORM, BID (2 PUFF(S), BID 1-0-1)/AS NEEDED (2 PUFFS), ROUTE: UNKNOWN
  16. MOMETASONE FUROATE [Suspect]
     Active Substance: MOMETASONE FUROATE
     Dosage: DAILY 2 PUFF(S), BID, ROUTE: UNKNOWN
  17. MOMETASONE FUROATE [Suspect]
     Active Substance: MOMETASONE FUROATE
     Dosage: UNK UNK, DAILY 2 PUFF(S), BID 1-0-1, ROUTE: UNKNOWN
  18. MOMETASONE FUROATE [Suspect]
     Active Substance: MOMETASONE FUROATE
     Dosage: 2 DOSAGE FORM, BID (2 PUFF(S), BID 1-0-1), ROUTE: UNKNOWN
  19. MOMETASONE FUROATE [Suspect]
     Active Substance: MOMETASONE FUROATE
     Dosage: 2 PUFFS (1-0-1), ROUTE: UNKNOWN
  20. MOMETASONE FUROATE [Suspect]
     Active Substance: MOMETASONE FUROATE
     Dosage: 2 DOSAGE FORM, Q12H, ROUTE: UNKNOWN
  21. MOMETASONE FUROATE [Suspect]
     Active Substance: MOMETASONE FUROATE
     Dosage: 2 PUFF(S), BID (2 PUFFS (1-0-1)), ROUTE: UNKNOWN
  22. CIALIS [Concomitant]
     Active Substance: TADALAFIL
     Indication: Product used for unknown indication
  23. CIALIS [Concomitant]
     Active Substance: TADALAFIL
  24. MAGNESIUM OROTATE [Suspect]
     Active Substance: MAGNESIUM OROTATE
     Indication: Product used for unknown indication
  25. IBUPROFEN [Suspect]
     Active Substance: IBUPROFEN
     Indication: Product used for unknown indication
  26. IBUPROFEN [Suspect]
     Active Substance: IBUPROFEN
  27. IBUPROFEN [Suspect]
     Active Substance: IBUPROFEN
  28. CALCIUM CARBONATE [Suspect]
     Active Substance: CALCIUM CARBONATE
     Indication: Product used for unknown indication
     Dosage: UNK, BID (STRENGTH: 500) BID (1-0-1)
  29. CALCIUM CARBONATE [Suspect]
     Active Substance: CALCIUM CARBONATE
  30. MINERALS\VITAMINS [Suspect]
     Active Substance: MINERALS\VITAMINS
     Indication: Product used for unknown indication
  31. MINERALS\VITAMINS [Suspect]
     Active Substance: MINERALS\VITAMINS
     Dosage: 1000 MG(, UNKNOWN BID (STRENGTH: 500) BID (1-0-1), EFFERVESCENT TABLET), ROUTE: UNKNOWN
  32. MINERALS\VITAMINS [Suspect]
     Active Substance: MINERALS\VITAMINS
     Dosage: UNK UNK, BID (STRENGTH: 500) BID (1-0-1)
  33. MINERALS\VITAMINS [Suspect]
     Active Substance: MINERALS\VITAMINS
     Dosage: UNK, BID (STRENGTH: 500) BID (1-0-1), ROUTE: UNKNOWN
  34. MINERALS\VITAMINS [Suspect]
     Active Substance: MINERALS\VITAMINS
     Dosage: UNK, Q12H (STRENGTH:500 MG), ROUTE: UNKNOWN
  35. MINERALS\VITAMINS [Suspect]
     Active Substance: MINERALS\VITAMINS
     Dosage: UNK, QD, ROUTE: UNKNOWN
  36. MINERALS\VITAMINS [Suspect]
     Active Substance: MINERALS\VITAMINS
     Dosage: (STRENGTH: 500) BID (1-0-1), ROUTE: UNKNOWN
  37. MINERALS\VITAMINS [Suspect]
     Active Substance: MINERALS\VITAMINS
     Dosage: 1000 MG, DAILY 1-0-1, ROUTE: UNKNOWN
  38. DICLOFENAC DIETHYLAMINE [Suspect]
     Active Substance: DICLOFENAC DIETHYLAMINE
     Indication: Product used for unknown indication
  39. DICLOFENAC DIETHYLAMINE [Suspect]
     Active Substance: DICLOFENAC DIETHYLAMINE
  40. DICLOFENAC DIETHYLAMINE [Suspect]
     Active Substance: DICLOFENAC DIETHYLAMINE
  41. CALCIUM CARBONATE [Concomitant]
     Active Substance: CALCIUM CARBONATE
     Indication: Product used for unknown indication
  42. SOAP [Suspect]
     Active Substance: SOAP
     Indication: Dyspnoea
     Dosage: Q3W, ROUTE: UNKNOWN, DOSAGE FORM: SHAMPOO
  43. SOAP [Suspect]
     Active Substance: SOAP
     Indication: Pneumothorax
  44. SOAP [Suspect]
     Active Substance: SOAP
     Indication: Secretion discharge
  45. SOAP [Suspect]
     Active Substance: SOAP
     Indication: Nasopharyngitis
  46. SOAP [Suspect]
     Active Substance: SOAP
     Indication: Nasopharyngitis
     Dosage: QD, ROUTE: UNKNOWN
  47. SOAP [Suspect]
     Active Substance: SOAP
     Indication: Cough
     Dosage: 10 GTT DROPS, QD, ROUTE: UNKNOWN
  48. SOAP [Suspect]
     Active Substance: SOAP
     Indication: Dysphonia
  49. SOAP [Suspect]
     Active Substance: SOAP
     Indication: Bronchitis
  50. SOAP [Suspect]
     Active Substance: SOAP
     Indication: Asthma
     Dosage: 10 GTT DROPS, QD, UNKNOWN ROUTE
  51. SOAP [Suspect]
     Active Substance: SOAP
  52. SOAP [Suspect]
     Active Substance: SOAP
     Dosage: UNK UNK, ONCE DAILY(10 GTT DROPS, QD)
  53. MOMETASONE [Suspect]
     Active Substance: MOMETASONE
     Indication: Product used for unknown indication
     Dosage: 2 DOSAGE FORM, Q12H(2 PUFFS BID), ROUTE: UNKNOWN
  54. ASPIRIN [Suspect]
     Active Substance: ASPIRIN
     Indication: Product used for unknown indication
  55. ASPIRIN [Suspect]
     Active Substance: ASPIRIN
  56. ASPIRIN [Suspect]
     Active Substance: ASPIRIN
  57. ASPIRIN [Suspect]
     Active Substance: ASPIRIN
  58. ASPIRIN [Suspect]
     Active Substance: ASPIRIN
  59. ASPIRIN [Suspect]
     Active Substance: ASPIRIN
  60. ASPIRIN [Suspect]
     Active Substance: ASPIRIN
  61. ASPIRIN [Suspect]
     Active Substance: ASPIRIN
  62. ASPIRIN [Suspect]
     Active Substance: ASPIRIN
  63. ASPIRIN [Suspect]
     Active Substance: ASPIRIN
  64. ASPIRIN [Suspect]
     Active Substance: ASPIRIN
  65. MOMETASONE FUROATE [Suspect]
     Active Substance: MOMETASONE FUROATE
     Indication: Product used for unknown indication
     Dosage: 2 DF, QD,(2 DOSAGE FORM, DAILY(1 IN 0.5 DAY)), ROUTE: UNKNOWN
  66. MOMETASONE FUROATE [Suspect]
     Active Substance: MOMETASONE FUROATE
     Dosage: 4 DF, QD, (2 DOSAGE FORM, BID (2 PUFF(S), BID 1-0-1)), ROUTE: UNKNOWN
  67. MOMETASONE FUROATE [Suspect]
     Active Substance: MOMETASONE FUROATE
     Dosage: UNK, BID 2 PUFF(S), BID (2 PUFFS (1-0-1)), ROUTE: UNKNOWN
  68. MOMETASONE FUROATE [Suspect]
     Active Substance: MOMETASONE FUROATE
  69. MOMETASONE FUROATE [Suspect]
     Active Substance: MOMETASONE FUROATE
     Dosage: UNK, BID 2 PUFF(S), BID (2 PUFFS (1-0-1)), ROUTE: UNKNOWN
  70. HERBALS [Suspect]
     Active Substance: HERBALS
     Indication: Product used for unknown indication
  71. HERBALS [Suspect]
     Active Substance: HERBALS
  72. HERBALS [Suspect]
     Active Substance: HERBALS
  73. HERBALS [Suspect]
     Active Substance: HERBALS
  74. HERBALS [Suspect]
     Active Substance: HERBALS
  75. HERBALS [Suspect]
     Active Substance: HERBALS
  76. MAGNESIUM OROTATE [Suspect]
     Active Substance: MAGNESIUM OROTATE
     Indication: Product used for unknown indication
  77. PRALUENT [Suspect]
     Active Substance: ALIROCUMAB
     Indication: Product used for unknown indication
  78. PRALUENT [Suspect]
     Active Substance: ALIROCUMAB
  79. PRALUENT [Suspect]
     Active Substance: ALIROCUMAB
  80. PRALUENT [Suspect]
     Active Substance: ALIROCUMAB
  81. CLOPIDOGREL BESILATE [Suspect]
     Active Substance: CLOPIDOGREL BESILATE
     Indication: Product used for unknown indication
     Dosage: UNK, QD, (DAILY BID (1-0-1)), ROUTE: UNKNOWN
  82. OLMESARTAN [Concomitant]
     Active Substance: OLMESARTAN
     Indication: Product used for unknown indication
  83. OLMESARTAN [Concomitant]
     Active Substance: OLMESARTAN
     Dosage: 500 IU, Q12H, ROUTE: UNKNOWN
  84. BIOTIN [Suspect]
     Active Substance: BIOTIN
     Indication: Product used for unknown indication
     Dosage: ROUTE: UNKNOWN, 1 DOSAGE FORM, DAILY (STRENGTH:100)
  85. BIOTIN [Suspect]
     Active Substance: BIOTIN
     Dosage: 1 DF, QD, ROUTE: UNKNOWN
  86. BIOTIN [Suspect]
     Active Substance: BIOTIN
     Dosage: UNK, QD (ROUTE: UNKNOWN), ROUTE: UNKNOWN
  87. BIOTIN [Suspect]
     Active Substance: BIOTIN
  88. BIOTIN [Suspect]
     Active Substance: BIOTIN
     Dosage: 1 DOSAGE FORM, DAILY, ROUTE: UNKNOWN
  89. BIOTIN [Suspect]
     Active Substance: BIOTIN
     Dosage: 1 DF, ONCE DAILY (STRENGTH 100), ROUTE: UNKNOWN
  90. BIOTIN [Suspect]
     Active Substance: BIOTIN
     Dosage: 1 DOSAGE FORM, QD, ROUTE: UNKNOWN
  91. XARELTO [Suspect]
     Active Substance: RIVAROXABAN
     Indication: Product used for unknown indication
  92. XARELTO [Suspect]
     Active Substance: RIVAROXABAN
  93. XARELTO [Suspect]
     Active Substance: RIVAROXABAN
  94. XARELTO [Suspect]
     Active Substance: RIVAROXABAN
  95. XARELTO [Suspect]
     Active Substance: RIVAROXABAN
  96. AMBROXOL HYDROCHLORIDE [Suspect]
     Active Substance: AMBROXOL HYDROCHLORIDE
     Indication: Product used for unknown indication
  97. AMBROXOL HYDROCHLORIDE [Suspect]
     Active Substance: AMBROXOL HYDROCHLORIDE
  98. AMBROXOL HYDROCHLORIDE [Suspect]
     Active Substance: AMBROXOL HYDROCHLORIDE
  99. AMBROXOL HYDROCHLORIDE [Suspect]
     Active Substance: AMBROXOL HYDROCHLORIDE
  100. AMBROXOL HYDROCHLORIDE [Suspect]
     Active Substance: AMBROXOL HYDROCHLORIDE
  101. ALBUTEROL SULFATE [Suspect]
     Active Substance: ALBUTEROL SULFATE
     Indication: Nasopharyngitis
  102. ALBUTEROL SULFATE [Suspect]
     Active Substance: ALBUTEROL SULFATE
     Indication: Dysphonia
  103. ALBUTEROL SULFATE [Suspect]
     Active Substance: ALBUTEROL SULFATE
     Indication: Productive cough
  104. ALBUTEROL SULFATE [Suspect]
     Active Substance: ALBUTEROL SULFATE
     Indication: Dysphonia
  105. ALBUTEROL SULFATE [Suspect]
     Active Substance: ALBUTEROL SULFATE
     Indication: Dyspnoea
  106. ALBUTEROL SULFATE [Suspect]
     Active Substance: ALBUTEROL SULFATE
     Indication: Cough
  107. ALBUTEROL SULFATE [Suspect]
     Active Substance: ALBUTEROL SULFATE
     Indication: Secretion discharge
  108. ALBUTEROL SULFATE [Suspect]
     Active Substance: ALBUTEROL SULFATE
     Indication: Chest discomfort
  109. ALBUTEROL SULFATE [Suspect]
     Active Substance: ALBUTEROL SULFATE
     Indication: Pneumothorax
  110. ALBUTEROL SULFATE [Suspect]
     Active Substance: ALBUTEROL SULFATE
     Indication: Pneumothorax
  111. .ALPHA.-TOCOPHEROL ACETATE [Suspect]
     Active Substance: .ALPHA.-TOCOPHEROL ACETATE
     Indication: Product used for unknown indication
     Dosage: 2000 IU, WE (2000 IU, QW), ROUTE: UNKNOWN
  112. .ALPHA.-TOCOPHEROL ACETATE [Suspect]
     Active Substance: .ALPHA.-TOCOPHEROL ACETATE
     Dosage: 1 DF, WE (1 DF, QW), ROUTE: UNKNOWN
  113. IBUPROFEN [Suspect]
     Active Substance: IBUPROFEN
     Indication: Product used for unknown indication
  114. IBUPROFEN [Suspect]
     Active Substance: IBUPROFEN
  115. IBUPROFEN [Suspect]
     Active Substance: IBUPROFEN
  116. ATROVENT [Suspect]
     Active Substance: IPRATROPIUM BROMIDE
     Indication: Dyspnoea
  117. ATROVENT [Suspect]
     Active Substance: IPRATROPIUM BROMIDE
     Indication: Cough
  118. ATROVENT [Suspect]
     Active Substance: IPRATROPIUM BROMIDE
     Indication: Pneumothorax
  119. ATROVENT [Suspect]
     Active Substance: IPRATROPIUM BROMIDE
     Indication: Secretion discharge
  120. ATROVENT [Suspect]
     Active Substance: IPRATROPIUM BROMIDE
     Indication: Chest discomfort
  121. ATROVENT [Suspect]
     Active Substance: IPRATROPIUM BROMIDE
     Indication: Nasopharyngitis
  122. ATROVENT [Suspect]
     Active Substance: IPRATROPIUM BROMIDE
     Indication: Pneumothorax
  123. ATROVENT [Suspect]
     Active Substance: IPRATROPIUM BROMIDE
     Indication: Nasopharyngitis
  124. ATROVENT [Suspect]
     Active Substance: IPRATROPIUM BROMIDE
     Indication: Dysphonia
  125. ATROVENT [Suspect]
     Active Substance: IPRATROPIUM BROMIDE
     Indication: Secretion discharge
  126. ATROVENT [Suspect]
     Active Substance: IPRATROPIUM BROMIDE
     Indication: Secretion discharge
  127. ATROVENT [Suspect]
     Active Substance: IPRATROPIUM BROMIDE
     Indication: Pneumothorax
  128. ATROVENT [Suspect]
     Active Substance: IPRATROPIUM BROMIDE
     Indication: Cough
  129. ATROVENT [Suspect]
     Active Substance: IPRATROPIUM BROMIDE
  130. ATROVENT [Suspect]
     Active Substance: IPRATROPIUM BROMIDE
  131. ATROVENT [Suspect]
     Active Substance: IPRATROPIUM BROMIDE
  132. ATROVENT [Suspect]
     Active Substance: IPRATROPIUM BROMIDE
  133. ATROVENT [Suspect]
     Active Substance: IPRATROPIUM BROMIDE
  134. ATROVENT [Suspect]
     Active Substance: IPRATROPIUM BROMIDE
  135. ATROVENT [Suspect]
     Active Substance: IPRATROPIUM BROMIDE
  136. ATROVENT [Suspect]
     Active Substance: IPRATROPIUM BROMIDE
  137. ATROVENT [Suspect]
     Active Substance: IPRATROPIUM BROMIDE
  138. ATROVENT [Suspect]
     Active Substance: IPRATROPIUM BROMIDE
  139. ATROVENT [Suspect]
     Active Substance: IPRATROPIUM BROMIDE
  140. ATROVENT [Suspect]
     Active Substance: IPRATROPIUM BROMIDE
  141. CALCIUM PANTOTHENATE [Suspect]
     Active Substance: CALCIUM PANTOTHENATE
     Indication: Product use in unapproved indication
     Dosage: UNK, ROUTE: UNKNOWN
  142. CALCIUM PANTOTHENATE [Suspect]
     Active Substance: CALCIUM PANTOTHENATE
     Indication: Product used for unknown indication
  143. CALCIUM PANTOTHENATE [Suspect]
     Active Substance: CALCIUM PANTOTHENATE
  144. CALCIUM PANTOTHENATE [Suspect]
     Active Substance: CALCIUM PANTOTHENATE
  145. CALCIUM PANTOTHENATE [Suspect]
     Active Substance: CALCIUM PANTOTHENATE
     Dosage: UNK, EVERY 8 HRS, ROUTE: UNKNOWN
  146. MOMETASONE FUROATE [Suspect]
     Active Substance: MOMETASONE FUROATE
     Indication: Product used for unknown indication
     Dosage: 2 PUFFS BID,  UNKNOWN ROUTE
  147. MOMETASONE FUROATE [Suspect]
     Active Substance: MOMETASONE FUROATE
  148. MOMETASONE FUROATE [Suspect]
     Active Substance: MOMETASONE FUROATE
  149. MOMETASONE FUROATE [Suspect]
     Active Substance: MOMETASONE FUROATE
     Dosage: 2 PUFFS BID,  UNKNOWN ROUTE
  150. MOMETASONE FUROATE [Suspect]
     Active Substance: MOMETASONE FUROATE
  151. MOMETASONE FUROATE [Suspect]
     Active Substance: MOMETASONE FUROATE
  152. MOMETASONE FUROATE [Suspect]
     Active Substance: MOMETASONE FUROATE
  153. MOMETASONE FUROATE [Suspect]
     Active Substance: MOMETASONE FUROATE
  154. MOMETASONE FUROATE [Suspect]
     Active Substance: MOMETASONE FUROATE
     Dosage: UNK UNK, EVERY 12 HOURS, UNKNOWN ROUTE
  155. ACETIC ACID\DELTAMETHRIN [Suspect]
     Active Substance: ACETIC ACID\DELTAMETHRIN
     Indication: Product used for unknown indication
     Dosage: 2000 IU, QD(1000 INTERNATIONAL UNIT, BID ), ROUTE: UNKNOWN
  156. ACETIC ACID\DELTAMETHRIN [Suspect]
     Active Substance: ACETIC ACID\DELTAMETHRIN
     Dosage: 500 IU, Q12H, ROUTE: UNKNOWN
  157. ACETIC ACID\DELTAMETHRIN [Suspect]
     Active Substance: ACETIC ACID\DELTAMETHRIN
  158. ACETIC ACID\DELTAMETHRIN [Suspect]
     Active Substance: ACETIC ACID\DELTAMETHRIN
     Dosage: 2000 INTERNATIONAL UNIT, BID, ROUTE: UNKNOWN
  159. ACETIC ACID\DELTAMETHRIN [Suspect]
     Active Substance: ACETIC ACID\DELTAMETHRIN
     Dosage: 1000 INTERNATIONAL UNIT, BID, ROUTE: UNKNOWN
  160. ACETIC ACID\DELTAMETHRIN [Suspect]
     Active Substance: ACETIC ACID\DELTAMETHRIN
     Dosage: 500 INTERNATIONAL UNIT, BID, ROUTE: UNKNOWN
  161. REPATHA [Concomitant]
     Active Substance: EVOLOCUMAB
     Indication: Product used for unknown indication
     Dosage: 1 DF, WE (1 DF, QW) (1 IN 1 WEEK), ROUTE: UNKNOWN
  162. REPATHA [Concomitant]
     Active Substance: EVOLOCUMAB
     Dosage: 1 DOSAGE FORM, QW (1 DF, WE (1 DF, QW), PRE-FILLED SYRINGE), ROUTE: UNKNOWN
  163. REPATHA [Concomitant]
     Active Substance: EVOLOCUMAB
  164. REPATHA [Concomitant]
     Active Substance: EVOLOCUMAB
     Dosage: 1 DOSAGE FORM, QW (1 DF, WE (1 IN 1 WEEK)), ROUTE: UNKNOWN
  165. COLESEVELAM [Suspect]
     Active Substance: COLESEVELAM
     Indication: Product used for unknown indication
  166. COLESEVELAM [Suspect]
     Active Substance: COLESEVELAM
  167. ACETIC ACID\DELTAMETHRIN [Suspect]
     Active Substance: ACETIC ACID\DELTAMETHRIN
     Indication: Product used for unknown indication
  168. ACETIC ACID\DELTAMETHRIN [Suspect]
     Active Substance: ACETIC ACID\DELTAMETHRIN
  169. REPATHA [Suspect]
     Active Substance: EVOLOCUMAB
     Indication: Product used for unknown indication
     Dosage: 1 DOSAGE FORM, QW, DOSAGE FORM: PRE-FILLED SYRINGE, ROUTE: UNKNOWN
  170. REPATHA [Suspect]
     Active Substance: EVOLOCUMAB
     Dosage: 1 DOSAGE FORM, QW, DOSAGE FORM: PRE-FILLED SYRINGE, ROUTE: UNKNOWN
  171. REPATHA [Suspect]
     Active Substance: EVOLOCUMAB
     Dosage: 1 DOSAGE FORM, QW, DOSAGE FORM: PRE-FILLED SYRINGE, ROUTE: UNKNOWN
  172. REPATHA [Suspect]
     Active Substance: EVOLOCUMAB
     Dosage: 1 DOSAGE FORM, Q3W, DOSAGE FORM: PRE-FILLED SYRINGE, ROUTE: UNKNOWN
  173. REPATHA [Suspect]
     Active Substance: EVOLOCUMAB
     Dosage: UNK, Q3W, DOSAGE FORM: PRE-FILLED SYRINGE, ROUTE: UNKNOWN
  174. REPATHA [Suspect]
     Active Substance: EVOLOCUMAB
     Dosage: 1 DOSAGE FORM, QW, DOSAGE FORM: PRE-FILLED SYRINGE, ROUTE: UNKNOWN
  175. REPATHA [Suspect]
     Active Substance: EVOLOCUMAB
     Dosage: 1 DOSAGE FORM, Q3W, DOSAGE FORM: PRE-FILLED SYRINGE, ROUTE: UNKNOWN
  176. REPATHA [Suspect]
     Active Substance: EVOLOCUMAB
  177. Magnesiumaspartat [Concomitant]
     Indication: Product used for unknown indication
     Dosage: 1000 MG, BID (INTERVAL: 1 DAY) (UNK, STRENGTH: 500)
  178. Magnesiumaspartat [Concomitant]
     Dosage: UNK UNK, BID (STRENGTH 500)
  179. Magnesiumaspartat [Concomitant]
     Dosage: ROUTE UNK
  180. MOMETASONE [Suspect]
     Active Substance: MOMETASONE
     Indication: Product used for unknown indication
  181. MOMETASONE [Suspect]
     Active Substance: MOMETASONE
  182. MOMETASONE [Suspect]
     Active Substance: MOMETASONE
  183. MOMETASONE [Suspect]
     Active Substance: MOMETASONE
  184. MOMETASONE [Suspect]
     Active Substance: MOMETASONE
  185. RIVAROXABAN [Suspect]
     Active Substance: RIVAROXABAN
     Indication: Product used for unknown indication
  186. RIVAROXABAN [Suspect]
     Active Substance: RIVAROXABAN
  187. ERGOCALCIFEROL [Suspect]
     Active Substance: ERGOCALCIFEROL
     Indication: Product used for unknown indication
     Dosage: ROUTE: UNKNOWN, 20000 INTERNATIONAL UNIT, WEEKLY (1/W)
  188. ERGOCALCIFEROL [Suspect]
     Active Substance: ERGOCALCIFEROL
  189. AMBROXOL HYDROCHLORIDE [Concomitant]
     Active Substance: AMBROXOL HYDROCHLORIDE
     Indication: Product used for unknown indication
  190. AMBROXOL HYDROCHLORIDE [Concomitant]
     Active Substance: AMBROXOL HYDROCHLORIDE
  191. AMBROXOL HYDROCHLORIDE [Concomitant]
     Active Substance: AMBROXOL HYDROCHLORIDE
  192. AMBROXOL HYDROCHLORIDE [Concomitant]
     Active Substance: AMBROXOL HYDROCHLORIDE
  193. DIETARY SUPPLEMENT [Suspect]
     Active Substance: DIETARY SUPPLEMENT
     Indication: Product used for unknown indication
  194. CALCIUM PANTOTHENATE [Suspect]
     Active Substance: CALCIUM PANTOTHENATE
     Indication: Product used for unknown indication
     Dosage: UNK UNK, EVERY 8 HRS, ROUTE: UNKNOWN
  195. CALCIUM PANTOTHENATE [Suspect]
     Active Substance: CALCIUM PANTOTHENATE
  196. MAGNESIUM OROTATE [Suspect]
     Active Substance: MAGNESIUM OROTATE
     Indication: Product used for unknown indication
     Dosage: UNK UNK, DAILY (TID (3-2-3)), ROUTE: UNKNOWN
  197. MAGNESIUM OROTATE [Suspect]
     Active Substance: MAGNESIUM OROTATE
  198. MAGNESIUM OROTATE [Suspect]
     Active Substance: MAGNESIUM OROTATE
  199. MAGNESIUM OROTATE [Suspect]
     Active Substance: MAGNESIUM OROTATE
  200. MAGNESIUM OROTATE [Suspect]
     Active Substance: MAGNESIUM OROTATE
  201. MAGNESIUM OROTATE [Suspect]
     Active Substance: MAGNESIUM OROTATE
     Dosage: UNK UNK, ONCE DAILY, ROUTE: UNKNOWN
  202. EVOLOCUMAB [Suspect]
     Active Substance: EVOLOCUMAB
     Indication: Product used for unknown indication
  203. EVOLOCUMAB [Suspect]
     Active Substance: EVOLOCUMAB
  204. EVOLOCUMAB [Suspect]
     Active Substance: EVOLOCUMAB
     Dosage: 1 DOSAGE FORM, QW, ROUTE: UNKNOWN
  205. TADALAFIL [Suspect]
     Active Substance: TADALAFIL
     Indication: Product used for unknown indication
  206. TADALAFIL [Suspect]
     Active Substance: TADALAFIL
  207. COLESEVELAM HYDROCHLORIDE [Suspect]
     Active Substance: COLESEVELAM HYDROCHLORIDE
     Indication: Product used for unknown indication
  208. COLESEVELAM HYDROCHLORIDE [Suspect]
     Active Substance: COLESEVELAM HYDROCHLORIDE
  209. COLESEVELAM HYDROCHLORIDE [Suspect]
     Active Substance: COLESEVELAM HYDROCHLORIDE
  210. COLESEVELAM HYDROCHLORIDE [Suspect]
     Active Substance: COLESEVELAM HYDROCHLORIDE
  211. COLESEVELAM HYDROCHLORIDE [Suspect]
     Active Substance: COLESEVELAM HYDROCHLORIDE
  212. COLESEVELAM HYDROCHLORIDE [Suspect]
     Active Substance: COLESEVELAM HYDROCHLORIDE
  213. COLESEVELAM HYDROCHLORIDE [Suspect]
     Active Substance: COLESEVELAM HYDROCHLORIDE
  214. COLESEVELAM HYDROCHLORIDE [Suspect]
     Active Substance: COLESEVELAM HYDROCHLORIDE
  215. COLESEVELAM HYDROCHLORIDE [Suspect]
     Active Substance: COLESEVELAM HYDROCHLORIDE
  216. COLESEVELAM HYDROCHLORIDE [Suspect]
     Active Substance: COLESEVELAM HYDROCHLORIDE
  217. BISOPROLOL [Suspect]
     Active Substance: BISOPROLOL
     Indication: Product used for unknown indication
     Dosage: 1 DOSAGE FORM, QW, ROUTE: RESPIRATORY (INHALATION), LAST ADMIN DATE: 2020-12-10
  218. BISOPROLOL [Suspect]
     Active Substance: BISOPROLOL
     Dosage: UNK, QD (1-0-0), UNKNOWN ROUTE, FIRST ADMIN DATE: 2020-12-10
  219. BISOPROLOL [Suspect]
     Active Substance: BISOPROLOL
     Dosage: 1 DOSAGE FORM, QW, ROUTE: RESPIRATORY (INHALATION), LAST ADMIN DATE: 2020-12-10
  220. BISOPROLOL [Suspect]
     Active Substance: BISOPROLOL
  221. BISOPROLOL [Suspect]
     Active Substance: BISOPROLOL
     Dosage: 1 DOSAGE FORM, DAILY, QD (1-0-0), ROUTE: UNKNOWN, FIRST ADMIN DATE: 2020-12-10
  222. TOCOPHEROL [Suspect]
     Active Substance: TOCOPHEROL
     Indication: Product used for unknown indication
     Dosage: 20000 IU, WE (UNK UNK, UNKNOWN Q2W20000 UNK, QW), ROUTE: UNKNOWN
  223. TOCOPHEROL [Suspect]
     Active Substance: TOCOPHEROL
  224. GINKGO [Suspect]
     Active Substance: GINKGO
     Indication: Product used for unknown indication
     Dosage: UNK, STRENGTH: 500) BID (1-0-1) BID, ROUTE: UNKNOWN
  225. GINKGO [Suspect]
     Active Substance: GINKGO
  226. ROSUVASTATIN [Suspect]
     Active Substance: ROSUVASTATIN
     Indication: Product used for unknown indication
  227. FLUTICASONE PROPIONATE\SALMETEROL XINAFOATE [Suspect]
     Active Substance: FLUTICASONE PROPIONATE\SALMETEROL XINAFOATE
     Indication: Cough
  228. FLUTICASONE PROPIONATE\SALMETEROL XINAFOATE [Suspect]
     Active Substance: FLUTICASONE PROPIONATE\SALMETEROL XINAFOATE
     Indication: Nasopharyngitis
  229. FLUTICASONE PROPIONATE\SALMETEROL XINAFOATE [Suspect]
     Active Substance: FLUTICASONE PROPIONATE\SALMETEROL XINAFOATE
     Indication: Dyspnoea
  230. FLUTICASONE PROPIONATE\SALMETEROL XINAFOATE [Suspect]
     Active Substance: FLUTICASONE PROPIONATE\SALMETEROL XINAFOATE
     Indication: Dysphonia
  231. FLUTICASONE PROPIONATE\SALMETEROL XINAFOATE [Suspect]
     Active Substance: FLUTICASONE PROPIONATE\SALMETEROL XINAFOATE
     Indication: Pneumothorax
  232. FLUTICASONE PROPIONATE\SALMETEROL XINAFOATE [Suspect]
     Active Substance: FLUTICASONE PROPIONATE\SALMETEROL XINAFOATE
     Indication: Secretion discharge
  233. FLUTICASONE PROPIONATE\SALMETEROL XINAFOATE [Suspect]
     Active Substance: FLUTICASONE PROPIONATE\SALMETEROL XINAFOATE
  234. FLUTICASONE PROPIONATE\SALMETEROL XINAFOATE [Suspect]
     Active Substance: FLUTICASONE PROPIONATE\SALMETEROL XINAFOATE
  235. FLUTICASONE PROPIONATE\SALMETEROL XINAFOATE [Suspect]
     Active Substance: FLUTICASONE PROPIONATE\SALMETEROL XINAFOATE
  236. FLUTICASONE PROPIONATE\SALMETEROL XINAFOATE [Suspect]
     Active Substance: FLUTICASONE PROPIONATE\SALMETEROL XINAFOATE
  237. FLUTICASONE PROPIONATE\SALMETEROL XINAFOATE [Suspect]
     Active Substance: FLUTICASONE PROPIONATE\SALMETEROL XINAFOATE
  238. FLUTICASONE PROPIONATE\SALMETEROL XINAFOATE [Suspect]
     Active Substance: FLUTICASONE PROPIONATE\SALMETEROL XINAFOATE
  239. FLUTICASONE PROPIONATE\SALMETEROL XINAFOATE [Suspect]
     Active Substance: FLUTICASONE PROPIONATE\SALMETEROL XINAFOATE
  240. FLUTICASONE PROPIONATE\SALMETEROL XINAFOATE [Suspect]
     Active Substance: FLUTICASONE PROPIONATE\SALMETEROL XINAFOATE
  241. FLUTICASONE PROPIONATE\SALMETEROL XINAFOATE [Suspect]
     Active Substance: FLUTICASONE PROPIONATE\SALMETEROL XINAFOATE
  242. FLUTICASONE PROPIONATE\SALMETEROL XINAFOATE [Suspect]
     Active Substance: FLUTICASONE PROPIONATE\SALMETEROL XINAFOATE
  243. FLUTICASONE PROPIONATE\SALMETEROL XINAFOATE [Suspect]
     Active Substance: FLUTICASONE PROPIONATE\SALMETEROL XINAFOATE
  244. FLUTICASONE PROPIONATE\SALMETEROL XINAFOATE [Suspect]
     Active Substance: FLUTICASONE PROPIONATE\SALMETEROL XINAFOATE
  245. PREDNISOLONE [Concomitant]
     Active Substance: PREDNISOLONE
     Indication: Product used for unknown indication
  246. PREDNISOLONE [Concomitant]
     Active Substance: PREDNISOLONE
  247. PREDNISOLONE [Concomitant]
     Active Substance: PREDNISOLONE
  248. PREDNISOLONE [Concomitant]
     Active Substance: PREDNISOLONE
  249. PREDNISOLONE [Concomitant]
     Active Substance: PREDNISOLONE
  250. PREDNISOLONE [Concomitant]
     Active Substance: PREDNISOLONE
  251. PREDNISOLONE [Concomitant]
     Active Substance: PREDNISOLONE
  252. PREDNISOLONE [Concomitant]
     Active Substance: PREDNISOLONE
  253. SALMETEROL XINAFOATE [Suspect]
     Active Substance: SALMETEROL XINAFOATE
     Indication: Chest discomfort
  254. SALMETEROL XINAFOATE [Suspect]
     Active Substance: SALMETEROL XINAFOATE
     Indication: Cough
  255. SALMETEROL XINAFOATE [Suspect]
     Active Substance: SALMETEROL XINAFOATE
     Indication: Dyspnoea
  256. SALMETEROL XINAFOATE [Suspect]
     Active Substance: SALMETEROL XINAFOATE
     Indication: Secretion discharge
  257. SALMETEROL XINAFOATE [Suspect]
     Active Substance: SALMETEROL XINAFOATE
     Indication: Nasopharyngitis
  258. SALMETEROL XINAFOATE [Suspect]
     Active Substance: SALMETEROL XINAFOATE
     Indication: Dysphonia
  259. ALBUTEROL SULFATE [Suspect]
     Active Substance: ALBUTEROL SULFATE
     Indication: Secretion discharge
  260. ALBUTEROL SULFATE [Suspect]
     Active Substance: ALBUTEROL SULFATE
     Indication: Cough
  261. ALBUTEROL SULFATE [Suspect]
     Active Substance: ALBUTEROL SULFATE
     Indication: Pneumothorax
  262. ALBUTEROL SULFATE [Suspect]
     Active Substance: ALBUTEROL SULFATE
     Indication: Dyspnoea
  263. ALBUTEROL SULFATE [Suspect]
     Active Substance: ALBUTEROL SULFATE
     Indication: Dysphonia
  264. ALBUTEROL SULFATE [Suspect]
     Active Substance: ALBUTEROL SULFATE
     Indication: Nasopharyngitis
  265. ALBUTEROL SULFATE [Suspect]
     Active Substance: ALBUTEROL SULFATE
  266. ALBUTEROL SULFATE [Suspect]
     Active Substance: ALBUTEROL SULFATE
  267. ALBUTEROL SULFATE [Suspect]
     Active Substance: ALBUTEROL SULFATE
  268. ALBUTEROL SULFATE [Suspect]
     Active Substance: ALBUTEROL SULFATE
  269. ALBUTEROL SULFATE [Suspect]
     Active Substance: ALBUTEROL SULFATE
  270. ALBUTEROL SULFATE [Suspect]
     Active Substance: ALBUTEROL SULFATE
  271. ALBUTEROL SULFATE [Suspect]
     Active Substance: ALBUTEROL SULFATE
  272. ALBUTEROL SULFATE [Suspect]
     Active Substance: ALBUTEROL SULFATE
  273. ALBUTEROL SULFATE [Suspect]
     Active Substance: ALBUTEROL SULFATE
  274. TAMSULOSIN [Suspect]
     Active Substance: TAMSULOSIN
     Indication: Product used for unknown indication
  275. TAMSULOSIN [Suspect]
     Active Substance: TAMSULOSIN
  276. TAMSULOSIN [Suspect]
     Active Substance: TAMSULOSIN
  277. TAMSULOSIN [Suspect]
     Active Substance: TAMSULOSIN
  278. TAMSULOSIN [Suspect]
     Active Substance: TAMSULOSIN
  279. ASPIRIN CALCIUM [Suspect]
     Active Substance: ASPIRIN CALCIUM
     Indication: Product used for unknown indication
     Dosage: UNK UNK, BID (UNK, STRENGTH: 500) BID (1-0-1)), UNKNOWN ROUTE
  280. ASPIRIN CALCIUM [Suspect]
     Active Substance: ASPIRIN CALCIUM
  281. POTASSIUM ASPARTATE [Suspect]
     Active Substance: POTASSIUM ASPARTATE
     Indication: Product used for unknown indication
  282. CRESTOR [Suspect]
     Active Substance: ROSUVASTATIN CALCIUM
     Indication: Product used for unknown indication
  283. CRESTOR [Suspect]
     Active Substance: ROSUVASTATIN CALCIUM
  284. CRESTOR [Suspect]
     Active Substance: ROSUVASTATIN CALCIUM
  285. CRESTOR [Suspect]
     Active Substance: ROSUVASTATIN CALCIUM
  286. CRESTOR [Suspect]
     Active Substance: ROSUVASTATIN CALCIUM
  287. MAGNESIUM ASPARTATE\POTASSIUM ASPARTATE [Suspect]
     Active Substance: MAGNESIUM ASPARTATE\POTASSIUM ASPARTATE
     Indication: Product used for unknown indication
  288. MAGNESIUM ASPARTATE\POTASSIUM ASPARTATE [Suspect]
     Active Substance: MAGNESIUM ASPARTATE\POTASSIUM ASPARTATE
  289. MAGNESIUM ASPARTATE\POTASSIUM ASPARTATE [Suspect]
     Active Substance: MAGNESIUM ASPARTATE\POTASSIUM ASPARTATE
  290. MAGNESIUM ASPARTATE\POTASSIUM ASPARTATE [Suspect]
     Active Substance: MAGNESIUM ASPARTATE\POTASSIUM ASPARTATE
  291. SOAP [Suspect]
     Active Substance: SOAP
     Indication: Bronchitis
     Dosage: UNK, Q3W, UNKNOWN ROUTE
  292. SOAP [Suspect]
     Active Substance: SOAP
     Indication: Pneumothorax
     Dosage: UNK (TIDCUTANEOUS EMULSION), UNKNOWN ROUTE
  293. SOAP [Suspect]
     Active Substance: SOAP
     Indication: Product used for unknown indication
  294. SOAP [Suspect]
     Active Substance: SOAP
     Indication: Cough
     Dosage: UNK, QD, UNKNOWN ROUTE
  295. SOAP [Suspect]
     Active Substance: SOAP
     Indication: Asthma
     Dosage: 10 DRP, QD(10 GTT DROPS, QD), UNKNOWN ROUTE
  296. SOAP [Suspect]
     Active Substance: SOAP
     Indication: Nasopharyngitis
  297. SOAP [Suspect]
     Active Substance: SOAP
     Indication: Product used for unknown indication
  298. SOAP [Suspect]
     Active Substance: SOAP
     Indication: Secretion discharge
  299. SOAP [Suspect]
     Active Substance: SOAP
     Indication: Dysphonia
  300. SOAP [Suspect]
     Active Substance: SOAP
     Indication: Dyspnoea
  301. MAGNESIUM GLUCONATE [Suspect]
     Active Substance: MAGNESIUM GLUCONATE
     Indication: Product used for unknown indication
  302. MAGNESIUM GLUCONATE [Suspect]
     Active Substance: MAGNESIUM GLUCONATE
  303. ALIROCUMAB [Suspect]
     Active Substance: ALIROCUMAB
     Indication: Product used for unknown indication
  304. ALIROCUMAB [Suspect]
     Active Substance: ALIROCUMAB
  305. GINKGO [Suspect]
     Active Substance: GINKGO
     Indication: Product used for unknown indication
     Dosage: 1000 MG, BID (INTERVAL: 1 DAY) (UNK, STRENGTH: 500); UNKNOWN ROUTE
  306. FLUTICASONE [Suspect]
     Active Substance: FLUTICASONE
     Indication: Dysphonia
  307. AMBROXOL [Suspect]
     Active Substance: AMBROXOL
     Indication: Product used for unknown indication
  308. AMBROXOL [Suspect]
     Active Substance: AMBROXOL
  309. ACETIC ACID\DELTAMETHRIN [Suspect]
     Active Substance: ACETIC ACID\DELTAMETHRIN
     Indication: Product used for unknown indication
  310. ACETIC ACID\DELTAMETHRIN [Suspect]
     Active Substance: ACETIC ACID\DELTAMETHRIN
  311. FLUTICASONE PROPIONATE\SALMETEROL XINAFOATE [Concomitant]
     Active Substance: FLUTICASONE PROPIONATE\SALMETEROL XINAFOATE
     Indication: Pneumothorax
  312. FLUTICASONE PROPIONATE\SALMETEROL XINAFOATE [Concomitant]
     Active Substance: FLUTICASONE PROPIONATE\SALMETEROL XINAFOATE
     Indication: Secretion discharge
  313. FLUTICASONE PROPIONATE\SALMETEROL XINAFOATE [Concomitant]
     Active Substance: FLUTICASONE PROPIONATE\SALMETEROL XINAFOATE
     Indication: Dyspnoea
  314. FLUTICASONE PROPIONATE\SALMETEROL XINAFOATE [Concomitant]
     Active Substance: FLUTICASONE PROPIONATE\SALMETEROL XINAFOATE
     Indication: Nasopharyngitis
  315. FLUTICASONE PROPIONATE\SALMETEROL XINAFOATE [Concomitant]
     Active Substance: FLUTICASONE PROPIONATE\SALMETEROL XINAFOATE
     Indication: Dysphonia
  316. FLUTICASONE PROPIONATE\SALMETEROL XINAFOATE [Concomitant]
     Active Substance: FLUTICASONE PROPIONATE\SALMETEROL XINAFOATE
     Indication: Cough
  317. CALCIUM [Suspect]
     Active Substance: CALCIUM
     Indication: Product used for unknown indication
  318. CALCIUM [Suspect]
     Active Substance: CALCIUM
     Dosage: UNK UNK, UNKNOWN BID (STRENGTH: 500) BID (1-0-1), EFFERVESCENT TABLET, UNKNOWN ROUTE
  319. EUCALYPTUS GLOBULUS LEAF [Concomitant]
     Active Substance: EUCALYPTUS GLOBULUS LEAF
     Indication: Product used for unknown indication
  320. MENTHA PIPERITA [Concomitant]
     Active Substance: MENTHA PIPERITA
     Indication: Product used for unknown indication
  321. CALCIUM PANTOTHENATE [Suspect]
     Active Substance: CALCIUM PANTOTHENATE
     Indication: Product used for unknown indication
  322. CLOPIDOGREL [Suspect]
     Active Substance: CLOPIDOGREL BISULFATE
     Indication: Product used for unknown indication
     Dosage: UNK, QD, FIRST ADMIN DATE: 2020-12-10, ROUTE: UNKNOWN
  323. CLOPIDOGREL [Suspect]
     Active Substance: CLOPIDOGREL BISULFATE
     Dosage: UNK UNK, BID, FIRST ADMIN DATE: 2020-12-10, ROUTE: UNKNOWN
  324. CLOPIDOGREL [Suspect]
     Active Substance: CLOPIDOGREL BISULFATE
     Dosage: UNK (UNK, QD, (DAILY BID (1-0-1))), FIRST ADMIN DATE: 2020-12-10, ROUTE: UNKNOWN
  325. CIALIS [Suspect]
     Active Substance: TADALAFIL
     Indication: Product used for unknown indication
  326. CIALIS [Suspect]
     Active Substance: TADALAFIL
  327. CIALIS [Suspect]
     Active Substance: TADALAFIL
  328. CIALIS [Suspect]
     Active Substance: TADALAFIL

REACTIONS (24)
  - Atrial fibrillation [Recovered/Resolved]
  - Cardiac disorder [Unknown]
  - Brain natriuretic peptide increased [Unknown]
  - Myoglobin blood increased [Unknown]
  - Fractional exhaled nitric oxide increased [Recovered/Resolved]
  - Sensation of foreign body [Unknown]
  - Muscle spasms [Unknown]
  - Obstructive sleep apnoea syndrome [Unknown]
  - Dyspnoea [Unknown]
  - Nasopharyngitis [Unknown]
  - Secretion discharge [Unknown]
  - Obstructive airways disorder [Unknown]
  - Plantar fasciitis [Unknown]
  - Wheezing [Unknown]
  - Dysphonia [Not Recovered/Not Resolved]
  - Coronary artery disease [Unknown]
  - Eosinophilia [Unknown]
  - Exostosis [Unknown]
  - Dyspnoea exertional [Unknown]
  - Increased upper airway secretion [Unknown]
  - Pneumothorax [Not Recovered/Not Resolved]
  - Cough [Not Recovered/Not Resolved]
  - Chest discomfort [Not Recovered/Not Resolved]
  - Bronchospasm [Unknown]

NARRATIVE: CASE EVENT DATE: 20200320
